FAERS Safety Report 22905079 (Version 3)
Quarter: 2023Q4

REPORT INFORMATION
  Report Type: Spontaneous
  Country: US (occurrence: None)
  Receive Date: 20230905
  Receipt Date: 20231031
  Transmission Date: 20240110
  Serious: No
  Sender: FDA-Public Use
  Company Number: 2023A200940

PATIENT
  Age: 81 Year
  Sex: Female
  Weight: 72.4 kg

DRUGS (1)
  1. BYDUREON BCISE [Suspect]
     Active Substance: EXENATIDE
     Indication: Myelosuppression
     Dosage: 2.0MG UNKNOWN
     Route: 058
     Dates: start: 20230623, end: 20231003

REACTIONS (4)
  - Diarrhoea [Recovered/Resolved]
  - Incorrect dose administered by device [Unknown]
  - Device delivery system issue [Unknown]
  - Device leakage [Unknown]
